FAERS Safety Report 5830428-4 (Version None)
Quarter: 2008Q3

REPORT INFORMATION
  Report Type: 
  Country: None (occurrence: None)
  Receive Date: 20080801
  Receipt Date: 20080723
  Transmission Date: 20090109
  Serious: Yes (Death, Hospitalization)
  Sender: FDA-Public Use
  Company Number: JP-JNJFOC-20060306195

PATIENT
  Sex: Female
  Weight: 51 kg

DRUGS (22)
  1. INFLIXIMAB, RECOMBINANT [Suspect]
     Dosage: 3RD DOSE
     Route: 042
  2. INFLIXIMAB, RECOMBINANT [Suspect]
     Dosage: 2ND DOSE
     Route: 042
  3. INFLIXIMAB, RECOMBINANT [Suspect]
     Indication: RHEUMATOID ARTHRITIS
     Dosage: 1ST DOSE
     Route: 042
  4. RHEUMATREX [Suspect]
     Indication: RHEUMATOID ARTHRITIS
     Route: 048
  5. OSTELUC [Concomitant]
     Indication: RHEUMATOID ARTHRITIS
     Dosage: ADMISTRATION START DATE BEFORE 12-APR-2005
     Route: 048
  6. FOLIAMIN [Concomitant]
     Indication: PROPHYLAXIS
     Dosage: ADMISTRATION START DATE BEFORE 12-APR-2005
     Route: 048
  7. CARVEDILOL [Concomitant]
     Indication: ANGINA PECTORIS
     Route: 048
  8. KARY UNI [Concomitant]
     Indication: CATARACT
     Dosage: ^ADEQUATE DOSE^
     Route: 047
  9. KETOPROFEN [Concomitant]
     Indication: RHEUMATOID ARTHRITIS
     Dosage: ^ADEQUATE DOSE^
     Route: 061
  10. AMARYL [Concomitant]
     Route: 048
  11. AMARYL [Concomitant]
     Route: 048
  12. AMARYL [Concomitant]
     Indication: DIABETES MELLITUS
     Route: 048
  13. METFORMIN HCL [Concomitant]
     Route: 048
  14. METFORMIN HCL [Concomitant]
     Indication: DIABETES MELLITUS
     Route: 048
  15. PARIET [Concomitant]
     Route: 048
  16. PARIET [Concomitant]
     Route: 048
  17. PARIET [Concomitant]
     Indication: GASTROINTESTINAL DISORDER THERAPY
     Route: 048
  18. PURSENNID [Concomitant]
     Route: 048
  19. PURSENNID [Concomitant]
     Route: 048
  20. PURSENNID [Concomitant]
     Route: 048
  21. PURSENNID [Concomitant]
     Indication: CONSTIPATION PROPHYLAXIS
     Route: 048
  22. ARASENA [Concomitant]
     Indication: ORAL HERPES
     Dosage: ^ADEQUATE DOSE^
     Route: 061

REACTIONS (7)
  - CARDIAC FAILURE [None]
  - CONSTIPATION [None]
  - DIABETES MELLITUS [None]
  - NAUSEA [None]
  - PNEUMOCYSTIS JIROVECI PNEUMONIA [None]
  - RASH [None]
  - VOMITING [None]
